FAERS Safety Report 10082500 (Version 2)
Quarter: 2014Q2

REPORT INFORMATION
  Report Type: Spontaneous
  Country: JP (occurrence: JP)
  Receive Date: 20140416
  Receipt Date: 20140425
  Transmission Date: 20141212
  Serious: Yes (Other)
  Sender: FDA-Public Use
  Company Number: JP-SUCAMPO PHARMA AMERICAS, INC-SPI201400255

PATIENT
  Age: 90 Year
  Sex: Male

DRUGS (7)
  1. AMITIZA [Suspect]
     Indication: CONSTIPATION
     Dosage: 24 MCG, QD
     Route: 048
     Dates: start: 20130902, end: 201403
  2. UNKNOWN [Concomitant]
     Indication: CONSTIPATION
     Dosage: 9 G, TID
     Route: 048
     Dates: start: 20110915
  3. OMEPRAZOLE [Concomitant]
     Indication: GASTROOESOPHAGEAL REFLUX DISEASE
     Dosage: 20 MG, BID
     Route: 048
  4. UNKNOWN [Concomitant]
     Indication: BENIGN PROSTATIC HYPERPLASIA
     Dosage: 0.2 MG, QD
     Route: 048
  5. MAGMITT [Concomitant]
     Indication: CONSTIPATION
     Dosage: 990 MG, TID
     Route: 048
  6. SENNOSIDE [Concomitant]
     Indication: CONSTIPATION
     Dosage: 36 MG, QD
     Route: 048
  7. UNKNOWN [Concomitant]
     Indication: MYALGIA
     Dosage: UNK
     Route: 062
     Dates: start: 20110921

REACTIONS (3)
  - Loss of consciousness [Recovered/Resolved]
  - Hypotension [Unknown]
  - Depressed level of consciousness [Unknown]
